FAERS Safety Report 9408370 (Version 1)
Quarter: 2013Q3

REPORT INFORMATION
  Report Type: Spontaneous
  Country: DE (occurrence: DE)
  Receive Date: 20130718
  Receipt Date: 20130718
  Transmission Date: 20140515
  Serious: Yes (Congenital Anomaly, Other)
  Sender: FDA-Public Use
  Company Number: PHHY2013DE074978

PATIENT
  Sex: 0

DRUGS (4)
  1. ALLOPURINOL [Suspect]
     Route: 064
  2. HYDROCHLOROTHIAZIDE [Suspect]
     Route: 064
  3. SODIUM CARBONATE [Suspect]
     Route: 064
  4. PYRIDOXINE [Suspect]
     Route: 064

REACTIONS (14)
  - Cleft lip and palate [Unknown]
  - Low set ears [Unknown]
  - Conductive deafness [Unknown]
  - Retrognathia [Unknown]
  - Microphthalmos [Unknown]
  - Hepatosplenomegaly [Unknown]
  - Cholestasis [Unknown]
  - Renal hypoplasia [Unknown]
  - Cryptorchism [Unknown]
  - Micropenis [Unknown]
  - Cerebral ventricle dilatation [Unknown]
  - Osteopenia [Unknown]
  - Karyotype analysis abnormal [Unknown]
  - Foetal exposure during pregnancy [Unknown]
